FAERS Safety Report 8556781-9 (Version None)
Quarter: 2012Q3

REPORT INFORMATION
  Report Type: 
  Country: None (occurrence: None)
  Receive Date: 20120801
  Receipt Date: 20120723
  Transmission Date: 20120928
  Serious: Yes (Life-Threatening, Hospitalization)
  Sender: FDA-Public Use
  Company Number: US-NOVOPROD-356507

PATIENT
  Age: 66 Year
  Sex: Female
  Weight: 108.84 kg

DRUGS (2)
  1. LEVEMIR [Suspect]
     Indication: TYPE 2 DIABETES MELLITUS
     Dosage: 57 U, QD, AT NIGHT
     Route: 058
     Dates: start: 20090101
  2. NOVOLOG [Suspect]
     Indication: TYPE 2 DIABETES MELLITUS
     Dosage: 35 U, TID, BEFORE EACH MEAL
     Route: 058
     Dates: start: 20090101

REACTIONS (2)
  - CARDIO-RESPIRATORY ARREST [None]
  - DIABETIC COMA [None]
